FAERS Safety Report 8236232-4 (Version None)
Quarter: 2012Q1

REPORT INFORMATION
  Report Type: 
  Country: None (occurrence: None)
  Receive Date: 20120327
  Receipt Date: 20120312
  Transmission Date: 20120608
  Serious: Yes (Other)
  Sender: FDA-Public Use
  Company Number: GB-RANBAXY-2012R1-53850

PATIENT
  Sex: Female

DRUGS (1)
  1. RISPERIDONE [Suspect]
     Indication: BIPOLAR I DISORDER
     Dosage: UNK
     Route: 048
     Dates: end: 20120110

REACTIONS (4)
  - GAMMA-GLUTAMYLTRANSFERASE INCREASED [None]
  - BLOOD CHOLESTEROL INCREASED [None]
  - HYPERPROLACTINAEMIA [None]
  - ALANINE AMINOTRANSFERASE INCREASED [None]
